FAERS Safety Report 22038192 (Version 1)
Quarter: 2023Q1

REPORT INFORMATION
  Report Type: Spontaneous
  Country: CZ (occurrence: CZ)
  Receive Date: 20230227
  Receipt Date: 20230227
  Transmission Date: 20230418
  Serious: Yes (Hospitalization)
  Sender: FDA-Public Use
  Company Number: CZ-ABBVIE-4316013

PATIENT
  Sex: Male

DRUGS (10)
  1. VENETOCLAX [Suspect]
     Active Substance: VENETOCLAX
     Indication: Acute myeloid leukaemia
     Dosage: PATIENT WAS ADMINISTERED STANDARD PROTOCOL: AZACITIDINE 75MG/M2 + VENETOCLAX DAY (D) 1-D28 - GRAD...
     Route: 048
     Dates: start: 202208
  2. VENETOCLAX [Suspect]
     Active Substance: VENETOCLAX
     Indication: Acute myeloid leukaemia
     Dosage: 4TH CYCLE AZA-VEN THERAPY WAS ADMINISTERED IN NOV TO DEC-2022 WITH PROTOCOL REDUCTION AZA 75MG/M2...
     Route: 048
     Dates: start: 202212
  3. VENETOCLAX [Suspect]
     Active Substance: VENETOCLAX
     Indication: Acute myeloid leukaemia
     Dosage: 5TH CYCLE AZA-VEN THERAPY WAS ADMINISTERED IN DEC-2022 WITH PROTOCOL REDUCTION AZA 50MG/M2 D1-D5,...
     Route: 048
     Dates: start: 202212
  4. VENETOCLAX [Suspect]
     Active Substance: VENETOCLAX
     Indication: Acute myeloid leukaemia
     Dosage: 2ND CYCLE WAS ADMINISTERED IN SEP-2022 WITH STANDARD PROTOCOL AZA 75MG/M2
     Route: 048
     Dates: start: 202209
  5. VENETOCLAX [Suspect]
     Active Substance: VENETOCLAX
     Indication: Acute myeloid leukaemia
     Dosage: 3RD CYCLE WAS ADMINISTERED IN OCT-2022 WITH STANDARD PROTOCOL AZA 75MG/M2
     Route: 048
     Dates: start: 202210
  6. AZACITIDINE [Suspect]
     Active Substance: AZACITIDINE
     Indication: Acute myeloid leukaemia
     Dosage: PATIENT WAS ADMINISTERED STANDARD PROTOCOL: AZACITIDINE 75MG/M2 + VENETOCLAX DAY (D) 1-D28 - GRAD...
     Route: 065
     Dates: start: 202208
  7. AZACITIDINE [Suspect]
     Active Substance: AZACITIDINE
     Indication: Acute myeloid leukaemia
     Dosage: 2ND CYCLE WAS ADMINISTERED IN SEP-2022 WITH STANDARD PROTOCOL AZA 75MG/M2
     Route: 065
     Dates: start: 202209
  8. AZACITIDINE [Suspect]
     Active Substance: AZACITIDINE
     Indication: Acute myeloid leukaemia
     Dosage: 3RD CYCLE WAS ADMINISTERED IN OCT-2022 WITH STANDARD PROTOCOL AZA 75MG/M2
     Route: 065
     Dates: start: 202210
  9. AZACITIDINE [Suspect]
     Active Substance: AZACITIDINE
     Indication: Acute myeloid leukaemia
     Dosage: 4TH CYCLE AZA-VEN THERAPY WAS ADMINISTERED IN NOV TO DEC-2022 WITH PROTOCOL REDUCTION AZA 75MG/M2...
     Route: 065
     Dates: start: 202212
  10. AZACITIDINE [Suspect]
     Active Substance: AZACITIDINE
     Indication: Acute myeloid leukaemia
     Dosage: 5TH CYCLE AZA-VEN THERAPY WAS ADMINISTERED IN DEC-2022 WITH PROTOCOL REDUCTION AZA 50MG/M2 D1-D5,...
     Route: 065
     Dates: start: 202212

REACTIONS (8)
  - C-reactive protein increased [Unknown]
  - Dizziness [Unknown]
  - Cytopenia [Unknown]
  - Psychomotor hyperactivity [Unknown]
  - Aphthous ulcer [Unknown]
  - Asthenia [Unknown]
  - Diarrhoea [Unknown]
  - Back pain [Unknown]
